FAERS Safety Report 5277609-9 (Version None)
Quarter: 2007Q1

REPORT INFORMATION
  Report Type: 
  Country: None (occurrence: None)
  Receive Date: 20070327
  Receipt Date: 20070319
  Transmission Date: 20070707
  Serious: Yes (Other)
  Sender: FDA-Public Use
  Company Number: US-SHR-US-2007-009632

PATIENT
  Age: 28 Year
  Sex: Female
  Weight: 81.6 kg

DRUGS (6)
  1. YASMIN [Suspect]
     Indication: ORAL CONTRACEPTION
     Dosage: 1 TAB(S), 1X/DAY
     Route: 048
     Dates: start: 20010101, end: 20070303
  2. BENADRYL ^WARNER-LAMBERT^               /USA/ [Suspect]
  3. CLARINEX                                /USA/ [Suspect]
  4. ALLEGRA [Suspect]
  5. HYDROXYZINE [Suspect]
  6. ZANTAC [Suspect]

REACTIONS (3)
  - ANTICHOLINERGIC SYNDROME [None]
  - FACIAL PAIN [None]
  - URTICARIA GENERALISED [None]
